FAERS Safety Report 11468558 (Version 1)
Quarter: 2015Q3

REPORT INFORMATION
  Report Type: Spontaneous
  Country: CO (occurrence: None)
  Receive Date: 20150903
  Receipt Date: 20150903
  Transmission Date: 20151125
  Serious: Yes (Other)
  Sender: FDA-Public Use
  Company Number: ONY-2015-006

PATIENT
  Weight: 1.29 kg

DRUGS (1)
  1. INFASURF [Suspect]
     Active Substance: CALFACTANT

REACTIONS (1)
  - No therapeutic response [None]

NARRATIVE: CASE EVENT DATE: 20150223
